FAERS Safety Report 5645019-8 (Version None)
Quarter: 2008Q1

REPORT INFORMATION
  Report Type: 
  Country: None (occurrence: None)
  Receive Date: 20080229
  Receipt Date: 20080221
  Transmission Date: 20080703
  Serious: Yes (Other)
  Sender: FDA-Public Use
  Company Number: US-ELI_LILLY_AND_COMPANY-US200802005351

PATIENT
  Sex: Male

DRUGS (4)
  1. BYETTA [Suspect]
     Dosage: 5 UG, 2/D
     Route: 058
     Dates: start: 20050101, end: 20050101
  2. BYETTA [Suspect]
     Dosage: 10 UG, 2/D
     Route: 058
     Dates: start: 20050101
  3. METFORMIN HCL [Concomitant]
     Dosage: 500 MG, 2/D
  4. ACTOS [Concomitant]
     Dosage: 15 MG, 2/D
     Dates: start: 20030101

REACTIONS (3)
  - HEPATIC FIBROSIS [None]
  - PORTAL HYPERTENSION [None]
  - VARICES OESOPHAGEAL [None]
